FAERS Safety Report 21349744 (Version 1)
Quarter: 2022Q3

REPORT INFORMATION
  Report Type: Spontaneous
  Country: US (occurrence: None)
  Receive Date: 20220916
  Receipt Date: 20220916
  Transmission Date: 20221027
  Serious: Yes (Hospitalization)
  Sender: FDA-Public Use
  Company Number: None

PATIENT
  Age: 67 Year
  Sex: Female

DRUGS (1)
  1. CAPECITABINE [Suspect]
     Active Substance: CAPECITABINE
     Dosage: 1000 MG BID ORAL??DATES OF USE:  0/08/2022- PRESENT?
     Route: 048

REACTIONS (2)
  - Loss of consciousness [None]
  - Blood potassium decreased [None]

NARRATIVE: CASE EVENT DATE: 20220705
